FAERS Safety Report 7830802-0 (Version None)
Quarter: 2011Q4

REPORT INFORMATION
  Report Type: 
  Country: None (occurrence: None)
  Receive Date: 20111021
  Receipt Date: 20111014
  Transmission Date: 20120403
  Serious: Yes (Other)
  Sender: FDA-Public Use
  Company Number: US-GLAXOSMITHKLINE-A0949879A

PATIENT
  Age: 67 Year
  Sex: Female

DRUGS (3)
  1. ANTIHYPERTENSIVE [Concomitant]
  2. CORTICOSTEROIDS [Concomitant]
     Indication: AUTOIMMUNE THROMBOCYTOPENIA
     Dates: start: 20070206
  3. PROMACTA [Suspect]
     Indication: AUTOIMMUNE THROMBOCYTOPENIA
     Route: 048

REACTIONS (1)
  - BLOOD PRESSURE INCREASED [None]
